FAERS Safety Report 5475201-4 (Version None)
Quarter: 2007Q4

REPORT INFORMATION
  Report Type: 
  Country: None (occurrence: None)
  Receive Date: 20071002
  Receipt Date: 20070921
  Transmission Date: 20080405
  Serious: Yes (Other)
  Sender: FDA-Public Use
  Company Number: US-ELI_LILLY_AND_COMPANY-US200709003523

PATIENT
  Age: 71 Year
  Sex: Female

DRUGS (2)
  1. FORTEO [Suspect]
     Dosage: UNK, UNK
     Dates: start: 20061001, end: 20061101
  2. PREDNISONE [Concomitant]

REACTIONS (3)
  - NAUSEA [None]
  - PELVIC FRACTURE [None]
  - WEIGHT DECREASED [None]
